FAERS Safety Report 10617643 (Version 2)
Quarter: 2014Q4

REPORT INFORMATION
  Report Type: Spontaneous
  Country: US (occurrence: US)
  Receive Date: 20141201
  Receipt Date: 20141222
  Transmission Date: 20150529
  Serious: Yes (Hospitalization, Other)
  Sender: FDA-Public Use
  Company Number: US-ELI_LILLY_AND_COMPANY-US201411008817

PATIENT
  Age: 86 Year
  Sex: Female

DRUGS (11)
  1. MESALAMINE. [Concomitant]
     Active Substance: MESALAMINE
  2. XALATAN [Concomitant]
     Active Substance: LATANOPROST
  3. HUMALOG [Suspect]
     Active Substance: INSULIN LISPRO
     Indication: TYPE 1 DIABETES MELLITUS
     Dosage: 4 U, EACH MORNING
     Route: 065
     Dates: start: 1993
  4. LANTUS [Concomitant]
     Active Substance: INSULIN GLARGINE
  5. SIMVASTATIN. [Concomitant]
     Active Substance: SIMVASTATIN
  6. TIMOPTIC [Concomitant]
     Active Substance: TIMOLOL MALEATE
  7. TYLENOL [Concomitant]
     Active Substance: ACETAMINOPHEN
  8. HUMALOG [Suspect]
     Active Substance: INSULIN LISPRO
     Dosage: 3 U, QD
     Route: 065
     Dates: start: 1993
  9. LISINOPRIL. [Concomitant]
     Active Substance: LISINOPRIL
  10. ADVAIR HFA [Concomitant]
     Active Substance: FLUTICASONE PROPIONATE\SALMETEROL XINAFOATE
  11. HUMALOG [Suspect]
     Active Substance: INSULIN LISPRO
     Dosage: 5 U, EACH EVENING
     Route: 065
     Dates: start: 1993

REACTIONS (11)
  - Arterial occlusive disease [Unknown]
  - Loss of consciousness [Unknown]
  - Medical device complication [Recovered/Resolved]
  - Acarodermatitis [Unknown]
  - Hypertension [Unknown]
  - Medication error [Unknown]
  - Gastrointestinal haemorrhage [Unknown]
  - Pneumothorax [Unknown]
  - Vomiting [Unknown]
  - Cardiac failure congestive [Unknown]
  - Diarrhoea [Unknown]

NARRATIVE: CASE EVENT DATE: 20140708
